FAERS Safety Report 4445483-6 (Version None)
Quarter: 2004Q2

REPORT INFORMATION
  Report Type: 
  Country: None (occurrence: None)
  Receive Date: 20040420
  Receipt Date: 20040315
  Transmission Date: 20050107
  Serious: Yes (Hospitalization)
  Sender: FDA-Public Use
  Company Number: WSDF_00383

PATIENT
  Age: 7 Year
  Sex: Male

DRUGS (1)
  1. WINRHO SDF [Suspect]
     Indication: IDIOPATHIC THROMBOCYTOPENIC PURPURA
     Dosage: 20 MCG/KG ONCE
     Dates: start: 20040301, end: 20040301

REACTIONS (3)
  - HAEMOLYTIC ANAEMIA [None]
  - JAUNDICE [None]
  - PALLOR [None]
